FAERS Safety Report 5367971-0 (Version None)
Quarter: 2007Q2

REPORT INFORMATION
  Report Type: 
  Country: None (occurrence: None)
  Receive Date: 20070622
  Receipt Date: 20070612
  Transmission Date: 20071010
  Serious: Yes (Other)
  Sender: FDA-Public Use
  Company Number: US-PFIZER INC-2007047867

PATIENT
  Sex: Male
  Weight: 70.909 kg

DRUGS (2)
  1. CHANTIX [Suspect]
     Indication: SMOKING CESSATION THERAPY
     Dates: start: 20070401, end: 20070522
  2. CELEBREX [Concomitant]

REACTIONS (11)
  - ABNORMAL DREAMS [None]
  - ALOPECIA [None]
  - BURNING SENSATION [None]
  - DRUG WITHDRAWAL SYNDROME [None]
  - EYE PAIN [None]
  - FEELING ABNORMAL [None]
  - HEADACHE [None]
  - PRURITUS [None]
  - SKIN DEPIGMENTATION [None]
  - SKIN DISCOLOURATION [None]
  - SKIN DISORDER [None]
